FAERS Safety Report 5167298-6 (Version None)
Quarter: 2006Q4

REPORT INFORMATION
  Report Type: 
  Country: None (occurrence: None)
  Receive Date: 20061130
  Receipt Date: 20061120
  Transmission Date: 20070319
  Serious: Yes (Other)
  Sender: FDA-Public Use
  Company Number: T200601344

PATIENT
  Sex: Female

DRUGS (1)
  1. OPTIRAY 160 [Suspect]
     Indication: COMPUTERISED TOMOGRAM
     Dosage: UNK, SINGLE, INTRAVENOUS
     Route: 042
     Dates: start: 20061106, end: 20061106

REACTIONS (2)
  - RESPIRATORY DISTRESS [None]
  - THROAT TIGHTNESS [None]
